FAERS Safety Report 13100552 (Version 1)
Quarter: 2017Q1

REPORT INFORMATION
  Report Type: Spontaneous
  Country: US (occurrence: US)
  Receive Date: 20170109
  Receipt Date: 20170109
  Transmission Date: 20170428
  Serious: Yes (Other)
  Sender: FDA-Public Use
  Company Number: None

PATIENT
  Age: 44 Year
  Sex: Female
  Weight: 117 kg

DRUGS (12)
  1. LAMACTIL [Concomitant]
     Active Substance: LAMOTRIGINE
  2. LATUDA [Concomitant]
     Active Substance: LURASIDONE HYDROCHLORIDE
  3. VIBERZI [Suspect]
     Active Substance: ELUXADOLINE
     Indication: ABDOMINAL PAIN
     Dosage: ?          QUANTITY:1 TABLET(S);?
     Route: 048
     Dates: start: 20161216, end: 20170108
  4. ESTRADIOL. [Concomitant]
     Active Substance: ESTRADIOL
  5. PRAZOSIN [Concomitant]
     Active Substance: PRAZOSIN
  6. IBUPROFEN. [Concomitant]
     Active Substance: IBUPROFEN
  7. VENTOLIN [Concomitant]
     Active Substance: ALBUTEROL SULFATE
  8. LISINOPRIL. [Concomitant]
     Active Substance: LISINOPRIL
  9. ATIVAN [Concomitant]
     Active Substance: LORAZEPAM
  10. DUONEB [Concomitant]
     Active Substance: ALBUTEROL SULFATE\IPRATROPIUM BROMIDE
  11. BACLOFEN. [Concomitant]
     Active Substance: BACLOFEN
  12. VIBERZI [Suspect]
     Active Substance: ELUXADOLINE
     Indication: DIARRHOEA
     Dosage: ?          QUANTITY:1 TABLET(S);?
     Route: 048
     Dates: start: 20161216, end: 20170108

REACTIONS (1)
  - Drug dependence [None]

NARRATIVE: CASE EVENT DATE: 20170108
